FAERS Safety Report 17107238 (Version 2)
Quarter: 2020Q1

REPORT INFORMATION
  Report Type: Spontaneous
  Country: FR (occurrence: FR)
  Receive Date: 20191203
  Receipt Date: 20200302
  Transmission Date: 20200409
  Serious: Yes (Hospitalization)
  Sender: FDA-Public Use
  Company Number: FR-MYLANLABS-2019M1116532

PATIENT
  Age: 72 Year
  Sex: Female
  Weight: 84 kg

DRUGS (13)
  1. LEDERFOLINE [Concomitant]
     Active Substance: LEUCOVORIN CALCIUM
     Indication: PROPHYLAXIS
     Dosage: 1 DOSAGE FORM, EVERY SECOND
     Route: 048
  2. KARDEGIC [Concomitant]
     Active Substance: ASPIRIN DL-LYSINE
     Dosage: 1 DOSAGE FORM, QD
     Route: 048
     Dates: end: 20190301
  3. UVEDOSE [Concomitant]
     Active Substance: CHOLECALCIFEROL
     Indication: VITAMIN SUPPLEMENTATION
     Dosage: 1 DOSAGE FORM, Q3MONTHS
     Route: 048
     Dates: end: 20190301
  4. ENDOXAN                            /00021101/ [Concomitant]
     Active Substance: CYCLOPHOSPHAMIDE
     Indication: NODAL MARGINAL ZONE B-CELL LYMPHOMA STAGE IV
     Dosage: 1420 MILLIGRAM, CYCLE
     Route: 041
     Dates: start: 20190122, end: 20190122
  5. CLARITHROMYCIN. [Concomitant]
     Active Substance: CLARITHROMYCIN
     Indication: PYREXIA
     Dosage: INCONNUE
     Route: 048
     Dates: start: 20190203
  6. ALLOPURINOL. [Concomitant]
     Active Substance: ALLOPURINOL
     Indication: PROPHYLAXIS
     Dosage: 300 MILLIGRAM, QD
     Route: 048
     Dates: start: 20190123, end: 20190203
  7. TRUXIMA [Suspect]
     Active Substance: RITUXIMAB-ABBS
     Indication: NODAL MARGINAL ZONE B-CELL LYMPHOMA STAGE IV
     Dosage: 700 MILLIGRAM
     Route: 042
     Dates: start: 20190122, end: 20190213
  8. BACTRIM [Suspect]
     Active Substance: SULFAMETHOXAZOLE\TRIMETHOPRIM
     Indication: PROPHYLAXIS
     Dosage: 3 DOSAGE FORM, QW
     Route: 048
     Dates: start: 20190123, end: 20190304
  9. ELDISINE [Concomitant]
     Active Substance: VINDESINE SULFATE
     Indication: NODAL MARGINAL ZONE B-CELL LYMPHOMA STAGE IV
     Dosage: 5.7 MILLIGRAM, CYCLE
     Route: 041
     Dates: start: 20190122, end: 20190122
  10. TELMISARTAN. [Concomitant]
     Active Substance: TELMISARTAN
     Dosage: 80 MILLIGRAM, QD
     Route: 048
     Dates: end: 20190301
  11. AMOXICILLIN. [Suspect]
     Active Substance: AMOXICILLIN
     Indication: PYREXIA
     Dosage: INCONNUE
     Route: 048
     Dates: start: 20190203, end: 20190210
  12. RULID [Concomitant]
     Active Substance: ROXITHROMYCIN
     Indication: FEBRILE NEUTROPENIA
     Dosage: INCONNUE
     Route: 048
     Dates: start: 20190213, end: 20190219
  13. SOLUPRED                           /00016217/ [Concomitant]
     Active Substance: PREDNISOLONE SODIUM METAZOATE
     Indication: NODAL MARGINAL ZONE B-CELL LYMPHOMA STAGE IV
     Dosage: 45MGX2 DE J1 ? J5
     Route: 048
     Dates: start: 20190122, end: 20190122

REACTIONS (3)
  - Rash maculo-papular [Recovered/Resolved]
  - Eosinophilia [Recovered/Resolved]
  - Oedema peripheral [Recovered/Resolved]

NARRATIVE: CASE EVENT DATE: 20190217
